FAERS Safety Report 5044298-8 (Version None)
Quarter: 2006Q2

REPORT INFORMATION
  Report Type: 
  Country: None (occurrence: None)
  Receive Date: 20060629
  Receipt Date: 20060615
  Transmission Date: 20061013
  Serious: Yes (Hospitalization)
  Sender: FDA-Public Use
  Company Number: L06-USA-02569-03

PATIENT
  Age: 32 Year
  Sex: Female

DRUGS (1)
  1. CARBAMAZEPINE [Suspect]
     Indication: GRAND MAL CONVULSION
     Dosage: 200 MG TID

REACTIONS (4)
  - GRAND MAL CONVULSION [None]
  - PETIT MAL EPILEPSY [None]
  - STATUS EPILEPTICUS [None]
  - THERAPY NON-RESPONDER [None]
